FAERS Safety Report 11238994 (Version 1)
Quarter: 2015Q3

REPORT INFORMATION
  Report Type: Spontaneous
  Country: FR (occurrence: FR)
  Receive Date: 20150706
  Receipt Date: 20150706
  Transmission Date: 20151125
  Serious: Yes (Hospitalization)
  Sender: FDA-Public Use
  Company Number: FR-009507513-1507FRA001898

PATIENT
  Age: 60 Year
  Sex: Male
  Weight: 115 kg

DRUGS (8)
  1. JANUMET [Suspect]
     Active Substance: METFORMIN HYDROCHLORIDE\SITAGLIPTIN PHOSPHATE
     Indication: DIABETES MELLITUS
     Dosage: 1 DF, QAM (STRENGTH REPORTED  AS 50/1000) (FREQUENCY: 1TAB IN MORN AND 1TAB EVE)
     Route: 048
     Dates: start: 201410
  2. CRESTOR [Concomitant]
     Active Substance: ROSUVASTATIN CALCIUM
     Dosage: UNK
  3. KARDEGIC [Concomitant]
     Active Substance: ASPIRIN LYSINE
     Dosage: UNK
  4. JANUMET [Suspect]
     Active Substance: METFORMIN HYDROCHLORIDE\SITAGLIPTIN PHOSPHATE
     Dosage: 1 DF, QPM (STRENGTH REPORTED  AS 50/1000) (FREQUENCY ALSO REPORTED AS 1TAB IN MORN AND 1TAB EVE)
     Route: 048
     Dates: start: 201410
  5. BRILIQUE [Concomitant]
     Active Substance: TICAGRELOR
     Dosage: UNK
  6. EUPANTOL [Concomitant]
     Active Substance: PANTOPRAZOLE SODIUM
     Dosage: UNK
  7. APROVEL [Concomitant]
     Active Substance: IRBESARTAN
     Dosage: UNK
  8. TEMERIT [Concomitant]
     Active Substance: NEBIVOLOL
     Dosage: UNK

REACTIONS (6)
  - Weight increased [Unknown]
  - Respiratory rate [Unknown]
  - Muscle spasms [Unknown]
  - Nausea [Unknown]
  - Infarction [Unknown]
  - Abdominal pain [Unknown]

NARRATIVE: CASE EVENT DATE: 201410
